FAERS Safety Report 20736798 (Version 1)
Quarter: 2022Q2

REPORT INFORMATION
  Report Type: Spontaneous
  Country: US (occurrence: US)
  Receive Date: 20220421
  Receipt Date: 20220421
  Transmission Date: 20220721
  Serious: No
  Sender: FDA-Public Use
  Company Number: US-Kiniksa Pharmaceuticals Ltd.-2022KPU000125

PATIENT
  Sex: Female

DRUGS (1)
  1. ARCALYST [Suspect]
     Active Substance: RILONACEPT
     Indication: Cryopyrin associated periodic syndrome
     Route: 058
     Dates: start: 2006

REACTIONS (5)
  - Product complaint [Unknown]
  - Pruritus [Unknown]
  - Feeling cold [Unknown]
  - Drug ineffective [Unknown]
  - Urticaria [Unknown]
